FAERS Safety Report 18298404 (Version 2)
Quarter: 2020Q4

REPORT INFORMATION
  Report Type: Spontaneous
  Country: US (occurrence: US)
  Receive Date: 20200922
  Receipt Date: 20201112
  Transmission Date: 20210113
  Serious: Yes (Death, Other)
  Sender: FDA-Public Use
  Company Number: US-TEVA-2020-US-1830488

PATIENT
  Age: 23 Year
  Sex: Male

DRUGS (7)
  1. HYDROCODONE [Suspect]
     Active Substance: HYDROCODONE
     Route: 065
  2. OXYCONTIN [Suspect]
     Active Substance: OXYCODONE HYDROCHLORIDE
     Route: 065
  3. OXYCODONE [Suspect]
     Active Substance: OXYCODONE
     Route: 065
  4. METHADONE [Suspect]
     Active Substance: METHADONE HYDROCHLORIDE
     Route: 065
  5. METHAMPHETAMINE [Suspect]
     Active Substance: METHAMPHETAMINE
     Route: 065
  6. LORTAB [Suspect]
     Active Substance: ACETAMINOPHEN\HYDROCODONE BITARTRATE
     Route: 065
  7. COCAINE [Suspect]
     Active Substance: COCAINE
     Route: 065

REACTIONS (7)
  - Dependence [Fatal]
  - Loss of consciousness [Not Recovered/Not Resolved]
  - Death [Fatal]
  - Overdose [Not Recovered/Not Resolved]
  - Substance abuse [Unknown]
  - Prescription drug used without a prescription [Unknown]
  - Road traffic accident [Unknown]

NARRATIVE: CASE EVENT DATE: 2006
